FAERS Safety Report 8074759-9 (Version None)
Quarter: 2012Q1

REPORT INFORMATION
  Report Type: 
  Country: None (occurrence: None)
  Receive Date: 20120126
  Receipt Date: 20120123
  Transmission Date: 20120608
  Serious: Yes (Death, Other)
  Sender: FDA-Public Use
  Company Number: US-ROCHE-1027859

PATIENT
  Sex: Male

DRUGS (1)
  1. RITUXAN [Suspect]
     Indication: PRODUCT USED FOR UNKNOWN INDICATION

REACTIONS (5)
  - WEGENER'S GRANULOMATOSIS [None]
  - PULMONARY ALVEOLAR HAEMORRHAGE [None]
  - PNEUMONIA [None]
  - SINUSITIS [None]
  - DEATH [None]
